FAERS Safety Report 19097950 (Version 3)
Quarter: 2021Q3

REPORT INFORMATION
  Report Type: Spontaneous
  Country: VE (occurrence: VE)
  Receive Date: 20210406
  Receipt Date: 20210828
  Transmission Date: 20211014
  Serious: Yes (Other)
  Sender: FDA-Public Use
  Company Number: NVSC2021VE073408

PATIENT
  Sex: Female

DRUGS (1)
  1. GLIVEC [Suspect]
     Active Substance: IMATINIB MESYLATE
     Indication: CHRONIC MYELOID LEUKAEMIA
     Dosage: 100 MG, QID (4 OF 100 MG)
     Route: 065

REACTIONS (3)
  - Gastrointestinal infection [Recovering/Resolving]
  - Nephrolithiasis [Unknown]
  - Kidney infection [Unknown]
